FAERS Safety Report 10985360 (Version 1)
Quarter: 2015Q2

REPORT INFORMATION
  Report Type: Spontaneous
  Country: US (occurrence: US)
  Receive Date: 20150404
  Receipt Date: 20150404
  Transmission Date: 20150821
  Serious: No
  Sender: FDA-Public Use
  Company Number: US-SA-2014SA048987

PATIENT

DRUGS (4)
  1. ALLEGRA-D [Suspect]
     Active Substance: FEXOFENADINE\PSEUDOEPHEDRINE
     Indication: HYPERSENSITIVITY
     Route: 048
  2. ALLEGRA-D [Suspect]
     Active Substance: FEXOFENADINE\PSEUDOEPHEDRINE
     Indication: NASAL DISORDER
     Route: 048
  3. ALLEGRA-D [Suspect]
     Active Substance: FEXOFENADINE\PSEUDOEPHEDRINE
     Indication: HEADACHE
     Route: 048
  4. ALLEGRA-D [Suspect]
     Active Substance: FEXOFENADINE\PSEUDOEPHEDRINE
     Indication: NASAL CONGESTION
     Route: 048

REACTIONS (1)
  - Adverse event [Unknown]
